FAERS Safety Report 10147015 (Version 2)
Quarter: 2014Q2

REPORT INFORMATION
  Report Type: Spontaneous
  Country: AU (occurrence: AU)
  Receive Date: 20140501
  Receipt Date: 20140529
  Transmission Date: 20141212
  Serious: Yes (Hospitalization)
  Sender: FDA-Public Use
  Company Number: AU-GLAXOSMITHKLINE-B0989901A

PATIENT
  Age: 62 Year
  Sex: Male

DRUGS (11)
  1. TAFINLAR [Suspect]
     Indication: MALIGNANT MELANOMA
     Dosage: 75MG TWICE PER DAY
     Route: 065
     Dates: start: 20140211
  2. MEKINIST [Suspect]
     Indication: MALIGNANT MELANOMA
     Dosage: 2MG UNKNOWN
     Route: 065
     Dates: start: 20140211
  3. LIPITOR [Concomitant]
     Indication: BLOOD CHOLESTEROL
  4. PROBITOR [Concomitant]
     Indication: ILL-DEFINED DISORDER
  5. PLAQUENIL [Concomitant]
     Indication: RHEUMATOID ARTHRITIS
     Dosage: 200MG TWICE PER DAY
  6. FOLIC ACID [Concomitant]
  7. CARTIA [Concomitant]
  8. KRILL OIL [Concomitant]
  9. NAPROXEN [Concomitant]
     Indication: PYREXIA
     Dosage: 600MG AS REQUIRED
  10. MORPHINE [Concomitant]
  11. CITALOPRAM [Concomitant]

REACTIONS (3)
  - Pyrexia [Recovered/Resolved]
  - Hyperhidrosis [Recovered/Resolved]
  - Nightmare [Recovered/Resolved]
